FAERS Safety Report 6093541-5 (Version None)
Quarter: 2009Q1

REPORT INFORMATION
  Report Type: 
  Country: None (occurrence: None)
  Receive Date: 20090226
  Receipt Date: 20090126
  Transmission Date: 20090719
  Serious: No
  Sender: FDA-Public Use
  Company Number: US-BAYER-200912088NA

PATIENT
  Age: 31 Year
  Sex: Female

DRUGS (2)
  1. YAZ [Suspect]
     Indication: CONTRACEPTION
     Route: 048
     Dates: start: 20090122
  2. EFFEXOR [Concomitant]

REACTIONS (3)
  - DEPRESSION [None]
  - MOOD ALTERED [None]
  - NERVOUSNESS [None]
